FAERS Safety Report 9998157 (Version 1)
Quarter: 2014Q1

REPORT INFORMATION
  Report Type: Spontaneous
  Country: US (occurrence: US)
  Receive Date: 20140311
  Receipt Date: 20140311
  Transmission Date: 20141002
  Serious: Yes (Hospitalization)
  Sender: FDA-Public Use
  Company Number: US-B.I. PHARMACEUTICALS,INC./RIDGEFIELD-2014-BI-10431BP

PATIENT
  Age: 42 Year
  Sex: Female

DRUGS (8)
  1. TRADJENTA [Suspect]
     Indication: TYPE 2 DIABETES MELLITUS
     Dosage: 5 MG
     Route: 048
     Dates: start: 20140106, end: 20140306
  2. VENLAFAXINE ER [Concomitant]
     Indication: DEPRESSION
     Dosage: 75 MG
     Route: 048
  3. ERGOCALCIFEROL [Concomitant]
     Dosage: 50000 U
     Route: 048
  4. ALDACTAZIDE [Concomitant]
     Indication: HYPERTENSION
     Dosage: STRENGTH: 25/25; DAILY DOSE: 25/25
     Route: 048
  5. LEVOTHYROXINE [Concomitant]
     Indication: HYPOTHYROIDISM
     Dosage: 137 MCG
     Route: 048
  6. FLONASE 0.5% [Concomitant]
     Dosage: FORMULATION:NASAL SPRAY
     Route: 045
  7. METFORMIN [Concomitant]
     Indication: TYPE 2 DIABETES MELLITUS
     Dosage: 2000 MG
     Route: 048
  8. POTASSIUM CHLORIDE [Concomitant]
     Dosage: 10 MEQ
     Route: 048

REACTIONS (1)
  - Pancreatitis acute [Not Recovered/Not Resolved]
